FAERS Safety Report 5636832-1 (Version None)
Quarter: 2008Q1

REPORT INFORMATION
  Report Type: 
  Country: None (occurrence: None)
  Receive Date: 20080225
  Receipt Date: 20080214
  Transmission Date: 20080703
  Serious: Yes (Life-Threatening, Hospitalization, Other)
  Sender: FDA-Public Use
  Company Number: JP-JNJFOC-20080106362

PATIENT
  Sex: Female
  Weight: 39 kg

DRUGS (36)
  1. DUROTEP [Suspect]
     Indication: DRUG USE FOR UNKNOWN INDICATION
     Route: 062
  2. FENTANYL CITRATE [Concomitant]
     Route: 042
  3. MIDAZOLAM HCL [Concomitant]
     Indication: MECHANICAL VENTILATION
     Route: 042
  4. MORPHINE HCL ELIXIR [Concomitant]
     Indication: ABDOMINAL PAIN
     Dosage: 20-40MG A DAY
     Route: 042
  5. FLUNITRAZEPAM [Concomitant]
     Indication: SEDATION
     Route: 042
  6. FLUNITRAZEPAM [Concomitant]
     Indication: PAIN
     Route: 042
  7. DOXAPRAM HYDROCHLORIDE [Concomitant]
     Indication: SOMNOLENCE
     Route: 042
  8. DOXAPRAM HYDROCHLORIDE [Concomitant]
     Indication: HYPERCAPNIA
     Route: 042
  9. DESLANOSIDE [Concomitant]
     Indication: HEART RATE
     Route: 042
  10. ULINASTATIN [Concomitant]
     Indication: SHOCK
     Dosage: 300000U/DAY
     Route: 042
  11. FILGRASTIM [Concomitant]
     Indication: NEUTROPENIA
     Route: 058
  12. FILGRASTIM [Concomitant]
     Indication: PYREXIA
     Route: 058
  13. VANCOMYCIN [Concomitant]
     Indication: SEPSIS
     Route: 042
  14. VANCOMYCIN [Concomitant]
     Indication: GIANT PAPILLARY CONJUNCTIVITIS
     Route: 042
  15. HUMAN ANTITHROMBIN [Concomitant]
     Indication: DISSEMINATED INTRAVASCULAR COAGULATION
     Route: 042
  16. AMIKACIN SULPHATE [Concomitant]
     Indication: ENTEROCOLITIS
     Route: 042
  17. AMIKACIN SULPHATE [Concomitant]
     Indication: INFECTION
     Route: 042
  18. BIAPENEM [Concomitant]
     Route: 042
  19. PIPERACILLIN [Concomitant]
     Route: 042
  20. VANCOMYCIN PREPARATIONS [Concomitant]
     Route: 048
  21. VANCOMYCIN PREPARATIONS [Concomitant]
     Route: 048
  22. GABEXATE MESILATE [Concomitant]
     Route: 042
  23. DALTEPARIN SODIUM [Concomitant]
     Route: 042
  24. ALBUMIN (HUMAN) [Concomitant]
     Route: 042
  25. ALBUMIN (HUMAN) [Concomitant]
     Route: 042
  26. PLASMA PROTEIN [Concomitant]
     Route: 042
  27. CARBENICILLIN SODIUM [Concomitant]
     Route: 042
  28. HUMAN PLASMA [Concomitant]
     Route: 041
  29. CONCENTRATED HUMAN BLOOD PLATELET [Concomitant]
     Route: 041
  30. CONCENTRATED HUMAN BLOOD PLATELET [Concomitant]
     Route: 041
  31. CONCENTRATED HUMAN BLOOD PLATELET [Concomitant]
     Route: 041
  32. ANTIBIOTICS-RESISTANT LACTIC ACID [Concomitant]
     Route: 048
  33. CLOSTRIDIUM BUTYRICUM [Concomitant]
     Route: 048
  34. DECADRON [Concomitant]
     Route: 065
  35. ZANTAC 150 [Concomitant]
     Route: 065
  36. HYDROCORTONE [Concomitant]
     Route: 065

REACTIONS (7)
  - ATELECTASIS [None]
  - DEPRESSED LEVEL OF CONSCIOUSNESS [None]
  - DRUG TOXICITY [None]
  - HYPERCAPNIA [None]
  - LOSS OF CONSCIOUSNESS [None]
  - RESPIRATORY DEPRESSION [None]
  - WITHDRAWAL SYNDROME [None]
